FAERS Safety Report 8121301-X (Version None)
Quarter: 2011Q4

REPORT INFORMATION
  Report Type: 
  Country: None (occurrence: None)
  Receive Date: 20111227
  Receipt Date: 20111107
  Transmission Date: 20120403
  Serious: No
  Sender: FDA-Public Use
  Company Number: PHEH2011US008863

PATIENT
  Age: 43 Year
  Sex: Female
  Weight: 67.1 kg

DRUGS (9)
  1. OXYCODONE HCL [Concomitant]
  2. OPANA ER [Concomitant]
  3. KEPPRA [Concomitant]
  4. GILENYA [Suspect]
     Dosage: 1 DF, QD, ORAL
     Route: 048
  5. CYMBALTA [Concomitant]
  6. LISINOPRIL [Concomitant]
  7. NAMENDA [Concomitant]
  8. SIMVASTATIN [Concomitant]
  9. PREMPRO [Concomitant]

REACTIONS (3)
  - HYPOAESTHESIA [None]
  - PHOTOSENSITIVITY REACTION [None]
  - MUSCULAR WEAKNESS [None]
